FAERS Safety Report 13010561 (Version 1)
Quarter: 2016Q4

REPORT INFORMATION
  Report Type: Spontaneous
  Country: US (occurrence: US)
  Receive Date: 20161208
  Receipt Date: 20161208
  Transmission Date: 20170207
  Serious: Yes (Life-Threatening)
  Sender: FDA-Public Use
  Company Number: None

PATIENT
  Age: 65 Year
  Sex: Male
  Weight: 98.43 kg

DRUGS (3)
  1. AMLODIPINE [Concomitant]
     Active Substance: AMLODIPINE BESYLATE
  2. AMBIEN [Suspect]
     Active Substance: ZOLPIDEM TARTRATE
     Indication: INSOMNIA
     Route: 048
     Dates: start: 20020429, end: 20150823
  3. ONE A DAY VITAMIN 65 PLUS [Concomitant]

REACTIONS (8)
  - Thinking abnormal [None]
  - Abnormal sleep-related event [None]
  - Confusional state [None]
  - Abnormal behaviour [None]
  - Somnambulism [None]
  - Depression [None]
  - Hallucination [None]
  - Legal problem [None]
